FAERS Safety Report 13063372 (Version 3)
Quarter: 2017Q1

REPORT INFORMATION
  Report Type: Spontaneous
  Country: US (occurrence: US)
  Receive Date: 20161227
  Receipt Date: 20170110
  Transmission Date: 20170428
  Serious: Yes (Life-Threatening, Hospitalization, Other)
  Sender: FDA-Public Use
  Company Number: US-AUROBINDO-AUR-APL-2016-15610

PATIENT
  Age: 81 Year
  Sex: Female

DRUGS (4)
  1. TICAGRELOR [Suspect]
     Active Substance: TICAGRELOR
     Indication: CHEST PAIN
  2. AMIODARONE [Suspect]
     Active Substance: AMIODARONE
     Indication: CHEST PAIN
     Dosage: UNK
     Route: 065
  3. TICAGRELOR [Suspect]
     Active Substance: TICAGRELOR
     Indication: ATRIAL FIBRILLATION
     Dosage: UNK
  4. AMIODARONE [Suspect]
     Active Substance: AMIODARONE
     Indication: ATRIAL FIBRILLATION

REACTIONS (8)
  - Cough [Unknown]
  - Dyspnoea [Unknown]
  - Alveolar proteinosis [Unknown]
  - Sepsis [Unknown]
  - Pulmonary toxicity [Unknown]
  - Orthopnoea [Unknown]
  - Hypoxia [Unknown]
  - Respiratory failure [Unknown]
